FAERS Safety Report 13609209 (Version 2)
Quarter: 2018Q1

REPORT INFORMATION
  Report Type: Report from Study
  Country: IT (occurrence: IT)
  Receive Date: 20170602
  Receipt Date: 20180213
  Transmission Date: 20180508
  Serious: No
  Sender: FDA-Public Use
  Company Number: IT-BAYER-2017-105520

PATIENT
  Age: 23 Year
  Sex: Female

DRUGS (1)
  1. CIPROXIN 500 MG COMPRESSE RIVESTITE CON FILM [Suspect]
     Active Substance: CIPROFLOXACIN
     Indication: RESPIRATORY TRACT INFECTION
     Dosage: 1 DF, UNK
     Route: 048
     Dates: start: 20170430, end: 20170430

REACTIONS (3)
  - Eyelid oedema [Recovering/Resolving]
  - Generalised erythema [Recovering/Resolving]
  - Pruritus [Recovering/Resolving]

NARRATIVE: CASE EVENT DATE: 20170430
